FAERS Safety Report 15198437 (Version 9)
Quarter: 2018Q4

REPORT INFORMATION
  Report Type: Spontaneous
  Country: PL (occurrence: PL)
  Receive Date: 20180725
  Receipt Date: 20181113
  Transmission Date: 20190204
  Serious: Yes (Hospitalization, Other)
  Sender: FDA-Public Use
  Company Number: PHHY2018PL050878

PATIENT
  Age: 52 Year
  Sex: Female

DRUGS (12)
  1. RITONAVIR. [Interacting]
     Active Substance: RITONAVIR
     Indication: HEPATITIS C
     Route: 065
  2. PREDNISONE. [Concomitant]
     Active Substance: PREDNISONE
     Indication: IMMUNOSUPPRESSION
     Dosage: UNK
     Route: 065
  3. PROPAFENONE. [Concomitant]
     Active Substance: PROPAFENONE
     Indication: VENTRICULAR ARRHYTHMIA
     Route: 065
  4. AMLODIPIN [Concomitant]
     Active Substance: AMLODIPINE BESYLATE
     Indication: HYPERTENSION
     Route: 065
  5. CICLOSPORIN [Suspect]
     Active Substance: CYCLOSPORINE
     Indication: IMMUNOSUPPRESSION
     Dosage: UNK
     Route: 065
  6. PANTOPRAZOLE [Concomitant]
     Active Substance: PANTOPRAZOLE
     Indication: PROPHYLAXIS
     Route: 065
  7. ACETYLSALICYLIC ACID [Concomitant]
     Active Substance: ASPIRIN
     Indication: ARTERIOSCLEROSIS
     Dosage: UNK
     Route: 065
  8. DASABUVIR [Concomitant]
     Active Substance: DASABUVIR
     Indication: HEPATITIS C
     Dosage: UNK
     Route: 065
  9. OMBITASVIR [Concomitant]
     Active Substance: OMBITASVIR
     Indication: HEPATITIS C
     Dosage: UNK
     Route: 065
  10. SIMVASTATIN. [Interacting]
     Active Substance: SIMVASTATIN
     Indication: CAROTID ARTERIOSCLEROSIS
     Dosage: 40 MG, QD
     Route: 065
  11. PARITAPREVIR [Interacting]
     Active Substance: PARITAPREVIR
     Indication: HEPATITIS C
     Dosage: UNK
     Route: 065
  12. MYCOPHENOLATE MOFETIL. [Concomitant]
     Active Substance: MYCOPHENOLATE MOFETIL
     Indication: IMMUNOSUPPRESSION
     Dosage: UNK
     Route: 065

REACTIONS (3)
  - Myalgia [Recovered/Resolved]
  - Rhabdomyolysis [Recovered/Resolved]
  - Drug interaction [Unknown]

NARRATIVE: CASE EVENT DATE: 20160111
